FAERS Safety Report 7659319-3 (Version None)
Quarter: 2011Q3

REPORT INFORMATION
  Report Type: 
  Country: None (occurrence: None)
  Receive Date: 20110802
  Receipt Date: 20110718
  Transmission Date: 20111222
  Serious: No
  Sender: FDA-Public Use
  Company Number: 2011MA008983

PATIENT
  Age: 75 Year
  Sex: Female

DRUGS (2)
  1. SULFATRIM PEDIATRIC [Suspect]
     Indication: OSTEOMYELITIS
  2. GLIPIZIDE [Suspect]
     Indication: TYPE 2 DIABETES MELLITUS
     Dosage: 5 MG

REACTIONS (5)
  - HYPOGLYCAEMIA [None]
  - CONVULSION [None]
  - CONDITION AGGRAVATED [None]
  - DECREASED APPETITE [None]
  - OEDEMA [None]
